FAERS Safety Report 11414181 (Version 4)
Quarter: 2015Q4

REPORT INFORMATION
  Report Type: Spontaneous
  Country: JP (occurrence: JP)
  Receive Date: 20150824
  Receipt Date: 20151202
  Transmission Date: 20160304
  Serious: Yes (Other)
  Sender: FDA-Public Use
  Company Number: JP-OTSUKA-2015_006468

PATIENT

DRUGS (7)
  1. SAMSCA [Suspect]
     Active Substance: TOLVAPTAN
     Dosage: 7.5 MG/DAY
     Route: 048
     Dates: start: 20150409, end: 20150420
  2. SAMSCA [Suspect]
     Active Substance: TOLVAPTAN
     Dosage: 11.25 MG/DAY
     Route: 048
     Dates: start: 20150421, end: 20150501
  3. SAMSCA [Suspect]
     Active Substance: TOLVAPTAN
     Dosage: 7.5 MG/DAY
     Route: 048
     Dates: start: 20150811, end: 20150827
  4. SAMSCA [Suspect]
     Active Substance: TOLVAPTAN
     Dosage: 15 MG/DAY
     Route: 048
     Dates: start: 20150502, end: 20150728
  5. SAMSCA [Suspect]
     Active Substance: TOLVAPTAN
     Dosage: 3.75 MG/DAY
     Route: 048
     Dates: start: 20150828
  6. SAMSCA [Suspect]
     Active Substance: TOLVAPTAN
     Indication: OEDEMA DUE TO CARDIAC DISEASE
     Dosage: 3.75 MG/DAY
     Route: 048
     Dates: start: 20140514, end: 20140706
  7. SAMSCA [Suspect]
     Active Substance: TOLVAPTAN
     Dosage: 5.625 MG/DAY
     Route: 048
     Dates: start: 20140707, end: 20150408

REACTIONS (3)
  - Blood creatinine increased [Unknown]
  - Blood urea increased [Unknown]
  - Blood potassium increased [Recovered/Resolved]

NARRATIVE: CASE EVENT DATE: 20150629
